FAERS Safety Report 7037168-7 (Version None)
Quarter: 2010Q4

REPORT INFORMATION
  Report Type: 
  Country: None (occurrence: None)
  Receive Date: 20101011
  Receipt Date: 20101001
  Transmission Date: 20110411
  Serious: Yes (Hospitalization)
  Sender: FDA-Public Use
  Company Number: FR-B.I. PHARMACEUTICALS,INC./RIDGEFIELD-2010-DE-05611BY

PATIENT
  Sex: Female

DRUGS (5)
  1. PRITOR PLUS [Suspect]
     Indication: HYPERTENSION
     Dosage: 1 DF
     Route: 048
  2. IPERTEN [Suspect]
     Indication: HYPERTENSION
     Dosage: 10 MG
     Route: 048
  3. TEMERIT [Suspect]
     Indication: HYPERTENSION
     Dosage: 5 MG
     Route: 048
  4. KARDEGIC [Suspect]
     Indication: THROMBOSIS PROPHYLAXIS
     Dosage: 75 MG
     Route: 048
  5. LEVOTHYROXINE SODIUM [Suspect]
     Indication: HYPOTHYROIDISM
     Dosage: 50 MCG
     Route: 048

REACTIONS (2)
  - BALANCE DISORDER [None]
  - NAUSEA [None]
